FAERS Safety Report 8507898-6 (Version None)
Quarter: 2012Q3

REPORT INFORMATION
  Report Type: 
  Country: None (occurrence: None)
  Receive Date: 20120709
  Receipt Date: 20120709
  Transmission Date: 20120928
  Serious: Yes (Other)
  Sender: FDA-Public Use
  Company Number: None

PATIENT
  Age: 62 Year
  Sex: Male
  Weight: 83.9154 kg

DRUGS (5)
  1. ASPIRIN [Concomitant]
  2. LEXAPRO [Concomitant]
  3. OLMESARTAN MEDOXOMIL [Suspect]
     Indication: HYPERTENSION
     Dosage: 20 MG DAILY PO
     Route: 048
     Dates: start: 20040101, end: 20120708
  4. MULTI-VITAMINS [Concomitant]
  5. RANITIDINE [Concomitant]

REACTIONS (7)
  - VITAMIN B12 DEFICIENCY [None]
  - GASTROOESOPHAGEAL REFLUX DISEASE [None]
  - BIOPSY SMALL INTESTINE ABNORMAL [None]
  - NORMOCHROMIC NORMOCYTIC ANAEMIA [None]
  - CONDITION AGGRAVATED [None]
  - CONSTIPATION [None]
  - ENDOSCOPY ABNORMAL [None]
